FAERS Safety Report 4482271-9 (Version None)
Quarter: 2004Q4

REPORT INFORMATION
  Report Type: 
  Country: None (occurrence: None)
  Receive Date: 20041020
  Receipt Date: 20041004
  Transmission Date: 20050328
  Serious: Yes (Hospitalization, Other)
  Sender: FDA-Public Use
  Company Number: USA040362025

PATIENT
  Age: 93 Year
  Sex: Male
  Weight: 65 kg

DRUGS (13)
  1. FORTEO [Suspect]
     Indication: OSTEOPOROSIS
     Dosage: 20 UG/1 DAY
     Dates: start: 20040111
  2. NITRO-DUR [Concomitant]
  3. TIMOLOL MALEATE [Concomitant]
  4. LIPITOR [Concomitant]
  5. ENALAPRIL [Concomitant]
  6. COUMADIN [Concomitant]
  7. PROTONIX [Concomitant]
  8. MAGNESIUM SULFATE [Concomitant]
  9. VASOTEC [Concomitant]
  10. POTASSIUM [Concomitant]
  11. ULTRAM [Concomitant]
  12. LASIX [Concomitant]
  13. SEROQUEL [Concomitant]

REACTIONS (13)
  - ASPIRATION [None]
  - ASTHENIA [None]
  - CARDIAC FAILURE CONGESTIVE [None]
  - CONDITION AGGRAVATED [None]
  - CONSTIPATION [None]
  - DELIRIUM [None]
  - DIZZINESS [None]
  - DUODENAL ULCER [None]
  - DYSPHAGIA [None]
  - GASTROOESOPHAGEAL REFLUX DISEASE [None]
  - OESOPHAGEAL ULCER HAEMORRHAGE [None]
  - OESOPHAGITIS [None]
  - PHARMACEUTICAL PRODUCT COMPLAINT [None]
